FAERS Safety Report 25943224 (Version 1)
Quarter: 2025Q4

REPORT INFORMATION
  Report Type: Spontaneous
  Country: US (occurrence: None)
  Receive Date: 20251021
  Receipt Date: 20251021
  Transmission Date: 20260118
  Serious: Yes (Hospitalization)
  Sender: FDA-CTU
  Company Number: None

PATIENT
  Age: 21 Month
  Sex: Male
  Weight: 9.6 kg

DRUGS (3)
  1. CYCLOPHOSPHAMIDE [Suspect]
     Active Substance: CYCLOPHOSPHAMIDE
     Dates: end: 20251013
  2. MESNA [Suspect]
     Active Substance: MESNA
     Dates: end: 20251013
  3. THIOTEPA [Suspect]
     Active Substance: THIOTEPA
     Dates: end: 20251010

REACTIONS (6)
  - Infusion related reaction [None]
  - Oxygen saturation decreased [None]
  - Somnolence [None]
  - Tachycardia [None]
  - Septic shock [None]
  - Cardio-respiratory arrest [None]

NARRATIVE: CASE EVENT DATE: 20251019
